FAERS Safety Report 13305228 (Version 1)
Quarter: 2017Q1

REPORT INFORMATION
  Report Type: Spontaneous
  Country: GB (occurrence: GB)
  Receive Date: 20170308
  Receipt Date: 20170308
  Transmission Date: 20170428
  Serious: Yes (Death, Life-Threatening)
  Sender: FDA-Public Use
  Company Number: GB-DEXPHARM-20170295

PATIENT
  Age: 78 Year
  Sex: Male

DRUGS (5)
  1. THIAMINE. [Concomitant]
     Active Substance: THIAMINE
  2. OMEPRAZOLE. [Suspect]
     Active Substance: OMEPRAZOLE
     Indication: UPPER GASTROINTESTINAL HAEMORRHAGE
     Dosage: 40MG THEN 20MG
     Route: 048
     Dates: end: 20170102
  3. ERTAPENEM [Concomitant]
     Active Substance: ERTAPENEM
  4. OMEPRAZOLE. [Suspect]
     Active Substance: OMEPRAZOLE
     Indication: UPPER GASTROINTESTINAL HAEMORRHAGE
     Dosage: 40MG THEN 20MG
     Route: 048
     Dates: start: 201611
  5. FLUCLOXACILLIN [Concomitant]
     Active Substance: FLUCLOXACILLIN

REACTIONS (2)
  - Drug ineffective [Fatal]
  - Toxic epidermal necrolysis [Unknown]

NARRATIVE: CASE EVENT DATE: 20161231
